FAERS Safety Report 7815423-8 (Version None)
Quarter: 2011Q4

REPORT INFORMATION
  Report Type: 
  Country: None (occurrence: None)
  Receive Date: 20111014
  Receipt Date: 20111004
  Transmission Date: 20120403
  Serious: Yes (Hospitalization)
  Sender: FDA-Public Use
  Company Number: FR-EISAI INC-E3810-04839-SPO-FR

PATIENT
  Sex: Female

DRUGS (8)
  1. ASPIRIN [Concomitant]
     Indication: CARDIOVASCULAR EVENT PROPHYLAXIS
     Route: 048
     Dates: start: 20100701
  2. INDAPAMIDE [Suspect]
     Route: 048
     Dates: start: 20100701, end: 20101117
  3. PERMIXON [Concomitant]
     Indication: BENIGN PROSTATIC HYPERPLASIA
     Route: 048
  4. VASTAREL [Suspect]
     Indication: CARDIOVASCULAR EVENT PROPHYLAXIS
     Route: 048
     Dates: start: 20100701, end: 20101117
  5. RABEPRAZOLE SODIUM [Suspect]
     Indication: PROPHYLAXIS
     Dosage: UNKNOWN
     Route: 048
     Dates: start: 20080101, end: 20101117
  6. PRAVIGARD PAC (COPACKAGED) [Suspect]
     Indication: CARDIOVASCULAR EVENT PROPHYLAXIS
     Dosage: UNKNOWN
     Route: 048
     Dates: start: 20100701, end: 20101117
  7. LERCANIDIPINE [Suspect]
     Route: 048
     Dates: start: 20100701, end: 20101117
  8. TENORMIN [Suspect]
     Route: 048
     Dates: start: 20101110, end: 20101117

REACTIONS (2)
  - RHABDOMYOLYSIS [None]
  - CYTOLYTIC HEPATITIS [None]
